FAERS Safety Report 6195263-9 (Version None)
Quarter: 2009Q2

REPORT INFORMATION
  Report Type: 
  Country: None (occurrence: None)
  Receive Date: 20090519
  Receipt Date: 20090511
  Transmission Date: 20091009
  Serious: Yes (Hospitalization)
  Sender: FDA-Public Use
  Company Number: US-AVENTIS-200914119US

PATIENT
  Sex: Female

DRUGS (2)
  1. LANTUS [Suspect]
     Route: 058
     Dates: start: 20040101
  2. NOVOLOG [Suspect]
     Dosage: DOSE: 26 UNITS PLUS SLIDING SCALE THREE TIMES DAILY
     Dates: start: 20040101

REACTIONS (6)
  - ABDOMINAL HERNIA [None]
  - BLOOD GLUCOSE FLUCTUATION [None]
  - CHEST PAIN [None]
  - CORONARY ARTERY OCCLUSION [None]
  - MYOCARDIAL INFARCTION [None]
  - POSTOPERATIVE WOUND INFECTION [None]
